FAERS Safety Report 15455594 (Version 2)
Quarter: 2018Q4

REPORT INFORMATION
  Report Type: Spontaneous
  Country: ES (occurrence: ES)
  Receive Date: 20181002
  Receipt Date: 20181030
  Transmission Date: 20190204
  Serious: Yes (Death, Hospitalization, Other)
  Sender: FDA-Public Use
  Company Number: ES-GLAXOSMITHKLINE-ES2016200328

PATIENT
  Age: 27 Year
  Sex: Male

DRUGS (13)
  1. VORICONAZOLE. [Suspect]
     Active Substance: VORICONAZOLE
     Indication: SCEDOSPORIUM INFECTION
     Dosage: 200 MG, BID
     Route: 042
  2. PREDNISONE. [Suspect]
     Active Substance: PREDNISONE
     Indication: IMMUNOSUPPRESSANT DRUG THERAPY
     Dosage: UNK
     Route: 065
  3. MILTEFOSINE [Suspect]
     Active Substance: MILTEFOSINE
     Indication: ANTIFUNGAL TREATMENT
     Dosage: 50 MG, BID
     Route: 065
  4. VORICONAZOLE. [Suspect]
     Active Substance: VORICONAZOLE
     Indication: INFECTION PROPHYLAXIS
     Dosage: 40 MG, TID NEBULIZATION (VRC 200MG DILUTED IN 20CC OF STERILE WATER AND REMOVE 4CC FROM THE MIXTURE)
     Route: 055
  5. VORICONAZOLE. [Suspect]
     Active Substance: VORICONAZOLE
     Dosage: INTRAPLEURAL INSTILLATIONS WITH VRC (400 MG IN 100 ML OF NORMAL SALINE), BID
     Route: 051
  6. ANIDULAFUNGIN [Suspect]
     Active Substance: ANIDULAFUNGIN
     Indication: ANTIFUNGAL TREATMENT
     Dosage: 100 MG, QD
     Route: 065
  7. CASPOFUNGIN [Suspect]
     Active Substance: CASPOFUNGIN
     Indication: SCEDOSPORIUM INFECTION
     Dosage: 50 MG, QD
     Route: 065
  8. POSACONAZOLE [Suspect]
     Active Substance: POSACONAZOLE
     Indication: ANTIFUNGAL TREATMENT
     Dosage: 300 MG, QD
     Route: 042
  9. TERBINAFINE. [Suspect]
     Active Substance: TERBINAFINE
     Indication: SCEDOSPORIUM INFECTION
     Dosage: 250 MG, QD
     Route: 065
  10. AMPHOTERICIN B. [Suspect]
     Active Substance: AMPHOTERICIN B
     Indication: INFECTION PROPHYLAXIS
     Dosage: 350 MG, QD
     Route: 042
  11. POSACONAZOLE [Suspect]
     Active Substance: POSACONAZOLE
     Dosage: 200 MG, QID
     Route: 048
  12. AMPHOTERICIN B. [Suspect]
     Active Substance: AMPHOTERICIN B
     Dosage: 25 MG QD, NEBULIZATION (L-AMB 50MG DILUTED IN 12CC OF STERILE WATER AND REMOVE 6CC FROM THE MIXTURE)
     Route: 055
  13. TACROLIMUS. [Suspect]
     Active Substance: TACROLIMUS
     Indication: IMMUNOSUPPRESSANT DRUG THERAPY
     Dosage: UNK
     Route: 065

REACTIONS (10)
  - Lung consolidation [Fatal]
  - Scedosporium infection [Fatal]
  - Cardiac valve vegetation [Fatal]
  - Multiple organ dysfunction syndrome [Fatal]
  - Respiratory failure [Fatal]
  - Dyspnoea [Fatal]
  - Hepatic enzyme increased [Fatal]
  - Infectious pleural effusion [Fatal]
  - Pyrexia [Fatal]
  - Drug resistance [Fatal]
